FAERS Safety Report 5750508-1 (Version None)
Quarter: 2008Q2

REPORT INFORMATION
  Report Type: 
  Country: None (occurrence: None)
  Receive Date: 20080523
  Receipt Date: 20080523
  Transmission Date: 20081010
  Serious: Yes (Hospitalization)
  Sender: FDA-Public Use
  Company Number: None

PATIENT
  Age: 67 Year
  Sex: Male
  Weight: 92.0802 kg

DRUGS (1)
  1. DIGITEK 125M MYLAN PHARMACEUTCALS BRAND BERTEK-UDL [Suspect]
     Indication: CARDIAC DISORDER
     Dosage: 125 EVERY DAY MOUTH E PASS MT OF 4 08
     Route: 048

REACTIONS (3)
  - DIZZINESS [None]
  - PHARMACEUTICAL PRODUCT COMPLAINT [None]
  - SYNCOPE [None]
